FAERS Safety Report 9229604 (Version 1)
Quarter: 2013Q2

REPORT INFORMATION
  Report Type: Spontaneous
  Country: US (occurrence: US)
  Receive Date: 20130414
  Receipt Date: 20130414
  Transmission Date: 20140414
  Serious: No
  Sender: FDA-Public Use
  Company Number: US-TEVA-397128USA

PATIENT
  Age: 47 Year
  Sex: Female
  Weight: 49.94 kg

DRUGS (10)
  1. COPAXONE [Suspect]
     Indication: PRODUCT USED FOR UNKNOWN INDICATION
     Dates: start: 1996
  2. VITAMIN C [Suspect]
  3. LORATADINE [Suspect]
  4. BIO IDENTICAL PROGESTIN [Concomitant]
     Dosage: 2 WEEKS OUT OF THE MONTH (TOPICAL AT NIGHT, ORAL IN THE MORNING)
  5. BIO IDENTICAL TESTOSTERONE [Concomitant]
     Dosage: EVERY 2-3 DAYS 1/8 TSP TOPICAL
     Route: 061
  6. NALTREXONE [Concomitant]
  7. VITAMIN D [Concomitant]
  8. ANTIOXIDANT-DHT [Concomitant]
  9. MULTI-B [Concomitant]
  10. MULTIVITAMIN [Concomitant]

REACTIONS (7)
  - Immediate post-injection reaction [Recovered/Resolved]
  - Feeling abnormal [Recovered/Resolved]
  - Abdominal pain [Recovered/Resolved]
  - Erythema [Recovered/Resolved]
  - Flushing [Recovered/Resolved]
  - Palpitations [Recovered/Resolved]
  - Feeling hot [Recovered/Resolved]
